FAERS Safety Report 7841529 (Version 2)
Quarter: 2012Q4

REPORT INFORMATION
  Report Type: Report from Study
  Country: ES (occurrence: ES)
  Receive Date: 20110304
  Receipt Date: 20121004
  Transmission Date: 20130627
  Serious: Yes (Hospitalization)
  Sender: FDA-Public Use
  Company Number: ES-ELI_LILLY_AND_COMPANY-ES201102006975

PATIENT
  Age: 4 Year
  Sex: Female
  Weight: 18.5 kg

DRUGS (2)
  1. SOMATROPIN [Suspect]
     Indication: GROWTH HORMONE DEFICIENCY
     Dosage: 0.6 mg, daily (1/D)
     Route: 058
     Dates: start: 200512
  2. SOMATROPIN [Suspect]
     Dosage: 0.4 mg, UNK
     Route: 058

REACTIONS (1)
  - Epiphysiolysis [Recovered/Resolved]
